FAERS Safety Report 7448110-9 (Version None)
Quarter: 2011Q2

REPORT INFORMATION
  Report Type: 
  Country: None (occurrence: None)
  Receive Date: 20110429
  Receipt Date: 20100329
  Transmission Date: 20111010
  Serious: No
  Sender: FDA-Public Use
  Company Number: US-ASTRAZENECA-2009SE33656

PATIENT
  Age: 58 Year
  Sex: Female

DRUGS (1)
  1. NEXIUM [Suspect]
     Indication: GASTROOESOPHAGEAL REFLUX DISEASE
     Route: 048

REACTIONS (6)
  - ABDOMINAL DISCOMFORT [None]
  - DYSPEPSIA [None]
  - ORAL MUCOSAL EXFOLIATION [None]
  - URINE ODOUR ABNORMAL [None]
  - DYSGEUSIA [None]
  - THROAT IRRITATION [None]
